FAERS Safety Report 4353813-9 (Version None)
Quarter: 2004Q2

REPORT INFORMATION
  Report Type: 
  Country: None (occurrence: None)
  Receive Date: 20040430
  Receipt Date: 20040420
  Transmission Date: 20050107
  Serious: Yes (Hospitalization)
  Sender: FDA-Public Use
  Company Number: JP-JNJFOC-20040402982

PATIENT
  Age: 55 Year
  Sex: Female

DRUGS (10)
  1. LEVOFLOXACIN [Suspect]
     Indication: UPPER RESPIRATORY TRACT INFLAMMATION
     Dosage: 400 MG, 1 IN 1 DAY, ORAL
     Route: 048
     Dates: start: 20040405, end: 20040406
  2. RIZE (CLOTIAZEPAM) [Suspect]
     Indication: DRUG USE FOR UNKNOWN INDICATION
     Dosage: ORAL
     Route: 048
  3. CALONAL (PARACETAMOL) [Suspect]
     Dates: start: 20040405, end: 20040406
  4. TOSUXACIN (TOSUFLOXACIN TOSILATE) [Suspect]
     Dosage: ORAL
     Route: 048
     Dates: start: 20040405, end: 20040406
  5. EURODIN (ESTAZOLAM) [Concomitant]
  6. PREDNISOLONE [Concomitant]
  7. EMPYNASE (EMPYNASE) [Concomitant]
  8. SEPAZON (CLOXAZOLAM) [Concomitant]
  9. ROCALTROL [Concomitant]
  10. MUCOSTA (REBAMIPIDE) [Concomitant]

REACTIONS (7)
  - AMNESIA [None]
  - BLOOD CHLORIDE DECREASED [None]
  - DEPRESSED LEVEL OF CONSCIOUSNESS [None]
  - HEPATIC FUNCTION ABNORMAL [None]
  - HYPOKALAEMIA [None]
  - HYPONATRAEMIA [None]
  - PYREXIA [None]
